FAERS Safety Report 14791471 (Version 1)
Quarter: 2018Q2

REPORT INFORMATION
  Report Type: Spontaneous
  Country: US (occurrence: US)
  Receive Date: 20180423
  Receipt Date: 20180423
  Transmission Date: 20180711
  Serious: Yes (Other)
  Sender: FDA-Public Use
  Company Number: US-NOVOPROD-595711

PATIENT
  Age: 50 Year
  Sex: Male
  Weight: 120.18 kg

DRUGS (3)
  1. VICTOZA [Concomitant]
     Active Substance: LIRAGLUTIDE
     Indication: TYPE 2 DIABETES MELLITUS
     Dosage: 1.8 MG, QD IN AM
     Route: 058
     Dates: start: 2017
  2. NOVOLOG [Suspect]
     Active Substance: INSULIN ASPART
     Indication: TYPE 2 DIABETES MELLITUS
     Dosage: 20 U AM, 20 U NOON, 40 U PM
     Route: 058
     Dates: start: 2017
  3. TRESIBA [Concomitant]
     Active Substance: INSULIN DEGLUDEC
     Indication: TYPE 2 DIABETES MELLITUS
     Dosage: 70 U, QD AT BEDTIME
     Route: 058
     Dates: start: 2017

REACTIONS (7)
  - Atrial fibrillation [Not Recovered/Not Resolved]
  - Myocardial infarction [Unknown]
  - Blood glucose decreased [Recovered/Resolved]
  - Bradycardia [Not Recovered/Not Resolved]
  - Blood glucose increased [Recovered/Resolved]
  - Sinus node dysfunction [Not Recovered/Not Resolved]
  - Coronary artery occlusion [Recovered/Resolved]

NARRATIVE: CASE EVENT DATE: 2017
